FAERS Safety Report 26086488 (Version 2)
Quarter: 2025Q4

REPORT INFORMATION
  Report Type: Spontaneous
  Country: EU (occurrence: EU)
  Receive Date: 20251125
  Receipt Date: 20251202
  Transmission Date: 20260117
  Serious: Yes (Other)
  Sender: AUROBINDO
  Company Number: EU-BFARM-25007978

PATIENT
  Age: 29 Year
  Sex: Female
  Weight: 70.3 kg

DRUGS (13)
  1. CLOZAPINE [Suspect]
     Active Substance: CLOZAPINE
     Indication: Product used for unknown indication
     Dosage: 2 DOSAGE FORM, ONCE A DAY (2
  2. AMISULPRIDE [Suspect]
     Active Substance: AMISULPRIDE
     Indication: Product used for unknown indication
     Dosage: 1.5 DOSAGE FORM, ONCE A DAY
  3. IBUPROFEN [Suspect]
     Active Substance: IBUPROFEN
     Indication: Pain
     Dosage: 1 DOSAGE FORM, AS NECESSARY (1
     Dates: start: 20250804
  4. SERTRALINE HYDROCHLORIDE [Suspect]
     Active Substance: SERTRALINE HYDROCHLORIDE
     Indication: Product used for unknown indication
     Dosage: 1 DOSAGE FORM, ONCE A DAY
  5. DIAZEPAM [Suspect]
     Active Substance: DIAZEPAM
     Indication: Restlessness
     Dosage: 5 MILLIGRAM, AS NECESSARY (
     Dates: start: 20250610
  6. BIPERIDEN [Suspect]
     Active Substance: BIPERIDEN
     Indication: Product used for unknown indication
     Dosage: 1 DOSAGE FORM, ONCE A DAY
  7. LACTULOSE [Suspect]
     Active Substance: LACTULOSE
     Indication: Constipation
     Dosage: 10 MILLILITER, DAILY
  8. LACTULOSE [Suspect]
     Active Substance: LACTULOSE
     Dosage: 10 MILLILITER, 3 TIMES A DAY (
  9. BIPERIDEN LACTATE [Suspect]
     Active Substance: BIPERIDEN LACTATE
     Indication: Extrapyramidal disorder
     Dosage: 1 DOSAGE FORM, AS NECESSARY
     Dates: start: 20250625
  10. HALOPERIDOL [Suspect]
     Active Substance: HALOPERIDOL
     Indication: Restlessness
     Dosage: 5 MILLIGRAM, AS NECESSARY (
     Route: 065
     Dates: start: 20250609
  11. LORAZEPAM [Suspect]
     Active Substance: LORAZEPAM
     Indication: Restlessness
     Dosage: 1 DOSAGE FORM, AS NECESSARY
  12. PROMETHAZINE [Suspect]
     Active Substance: PROMETHAZINE HYDROCHLORIDE
     Indication: Restlessness
     Dosage: 1 DOSAGE FORM, AS NECESSARY (
     Route: 065
     Dates: start: 20250608
  13. POLYETHYLENE GLYCOL 4000 [Suspect]
     Active Substance: POLYETHYLENE GLYCOL 4000
     Indication: Product used for unknown indication
     Dosage: 1 DOSAGE FORM, 3 TIMES A DAY (3ONE SACHET EACH MORNING, NOON, AND EVENING. FIRST ADMINISTRATION SCHEDULED FOR SEPTEMBER 22, 2025, AT 6:00 PM.)
     Route: 065

REACTIONS (41)
  - Angina pectoris [Unknown]
  - Circulatory collapse [Unknown]
  - Exophthalmos [Unknown]
  - Epilepsy [Unknown]
  - Loss of consciousness [Unknown]
  - Seizure [Unknown]
  - Syncope [Unknown]
  - Fear of death [Unknown]
  - Foaming at mouth [Unknown]
  - Tremor [Unknown]
  - Human bite [Unknown]
  - Amnesia [Unknown]
  - Head discomfort [Unknown]
  - Screaming [Unknown]
  - Speech disorder [Unknown]
  - Confusional state [Unknown]
  - Anxiety [Unknown]
  - Headache [Unknown]
  - Dizziness [Unknown]
  - Nausea [Unknown]
  - Constipation [Unknown]
  - Abdominal discomfort [Unknown]
  - Pelvic pain [Unknown]
  - Pyrexia [Unknown]
  - Weight increased [Unknown]
  - Alopecia [Unknown]
  - Menstruation delayed [Unknown]
  - Uterine pain [Unknown]
  - Contraindicated product administered [Unknown]
  - Circumstance or information capable of leading to medication error [Unknown]
  - Labelled drug-drug interaction issue [Unknown]
  - Muscle twitching [Unknown]
  - Motor dysfunction [Unknown]
  - Dysphemia [Unknown]
  - Memory impairment [Unknown]
  - Posture abnormal [Unknown]
  - Amenorrhoea [Unknown]
  - Stress [Unknown]
  - Tongue biting [Unknown]
  - Hyperacusis [Unknown]
  - Abdominal pain [Unknown]

NARRATIVE: CASE EVENT DATE: 20250101
